FAERS Safety Report 9719865 (Version 2)
Quarter: 2014Q1

REPORT INFORMATION
  Report Type: Report from Study
  Country: CA (occurrence: CA)
  Receive Date: 20131128
  Receipt Date: 20140124
  Transmission Date: 20141002
  Serious: Yes (Hospitalization)
  Sender: FDA-Public Use
  Company Number: CA-JNJFOC-20131114164

PATIENT
  Age: 23 Year
  Sex: Female
  Weight: 72.9 kg

DRUGS (5)
  1. REMICADE [Suspect]
     Indication: CROHN^S DISEASE
     Route: 042
     Dates: start: 20120906
  2. IMURAN [Concomitant]
     Route: 048
  3. PREDNISONE [Concomitant]
     Dosage: TAPERING DOSE
     Route: 048
  4. PREDNISONE [Concomitant]
     Dosage: TAPERING DOSE
     Route: 048
  5. YASMIN [Concomitant]
     Route: 065

REACTIONS (2)
  - Thyroiditis [Recovered/Resolved]
  - Crohn^s disease [Recovered/Resolved]
